FAERS Safety Report 8563886-5 (Version None)
Quarter: 2012Q3

REPORT INFORMATION
  Report Type: 
  Country: None (occurrence: None)
  Receive Date: 20120727
  Receipt Date: 20120727
  Transmission Date: 20120928
  Serious: Yes (Life-Threatening)
  Sender: FDA-Public Use
  Company Number: None

PATIENT
  Age: 44 Year
  Sex: Female
  Weight: 73.4827 kg

DRUGS (1)
  1. SULFAMETHOXAZOLE AND TRIMETHOPRIM [Suspect]
     Indication: SINUSITIS
     Dosage: ONE TABLET 2 TIMES A DAY PO
     Route: 048
     Dates: start: 20120714, end: 20120724

REACTIONS (5)
  - PYREXIA [None]
  - ARTHRALGIA [None]
  - HYPERSENSITIVITY [None]
  - GAIT DISTURBANCE [None]
  - RASH GENERALISED [None]
